FAERS Safety Report 8518401-9 (Version None)
Quarter: 2012Q3

REPORT INFORMATION
  Report Type: 
  Country: None (occurrence: None)
  Receive Date: 20120718
  Receipt Date: 20120710
  Transmission Date: 20120928
  Serious: Yes (Other)
  Sender: FDA-Public Use
  Company Number: ZA-JNJFOC-20120705410

PATIENT
  Sex: Male

DRUGS (2)
  1. REVELLEX [Suspect]
     Indication: PRODUCT USED FOR UNKNOWN INDICATION
     Route: 042
     Dates: start: 20120510
  2. REVELLEX [Suspect]
     Route: 042
     Dates: start: 20070214

REACTIONS (1)
  - ORAL SURGERY [None]
